FAERS Safety Report 10926171 (Version 1)
Quarter: 2015Q1

REPORT INFORMATION
  Report Type: Spontaneous
  Country: US (occurrence: None)
  Receive Date: 20150129
  Receipt Date: 20150129
  Transmission Date: 20150721
  Serious: No
  Sender: FDA-Public Use
  Company Number: FA-NJ2014-98687

PATIENT
  Age: 57 Year
  Sex: Female

DRUGS (12)
  1. LATANOPROST. [Concomitant]
     Active Substance: LATANOPROST
  2. ALPHAGAN P [Concomitant]
     Active Substance: BRIMONIDINE TARTRATE
  3. ILARIS [Concomitant]
     Active Substance: CANAKINUMAB
  4. TORSEMIDE. [Concomitant]
     Active Substance: TORSEMIDE
  5. SYMBICORT [Concomitant]
     Active Substance: BUDESONIDE\FORMOTEROL FUMARATE DIHYDRATE
  6. TERBUTALINE [Concomitant]
     Active Substance: TERBUTALINE
  7. ALBUTEROL. [Concomitant]
     Active Substance: ALBUTEROL
  8. DIPHENHYDRAMINE [Concomitant]
     Active Substance: DIPHENHYDRAMINE
  9. OPSUMIT [Suspect]
     Active Substance: MACITENTAN
     Indication: PULMONARY ARTERIAL HYPERTENSION
     Route: 048
     Dates: start: 20140424
  10. XALATAN [Concomitant]
     Active Substance: LATANOPROST
  11. ADCIRCA [Concomitant]
     Active Substance: TADALAFIL
  12. SPIRIVA [Concomitant]
     Active Substance: TIOTROPIUM BROMIDE MONOHYDRATE

REACTIONS (8)
  - Hot flush [None]
  - Headache [None]
  - Dry skin [None]
  - Diarrhoea [None]
  - Local swelling [None]
  - Dizziness [None]
  - Nasal congestion [None]
  - Fluid retention [None]

NARRATIVE: CASE EVENT DATE: 20140428
